FAERS Safety Report 8825697 (Version 1)
Quarter: 2012Q4

REPORT INFORMATION
  Report Type: 
  Country: BR (occurrence: BR)
  Receive Date: 20121004
  Receipt Date: 20121004
  Transmission Date: 20130627
  Serious: Yes (Other)
  Sender: FDA-Public Use
  Company Number: BR-PFIZER INC-2012240390

PATIENT
  Age: 70 Year
  Sex: Female

DRUGS (11)
  1. CELEBRA [Suspect]
     Indication: PAIN
     Dosage: 200 mg, 2x/day
  2. AAS [Concomitant]
     Indication: HYPERTENSION
     Dosage: UNK
     Dates: start: 2009
  3. GLIFAGE [Concomitant]
     Indication: DIABETES MELLITUS
     Dosage: UNK
     Dates: start: 2007
  4. LISADOR [Concomitant]
     Indication: MIGRAINE
     Dosage: UNK
     Dates: start: 2010
  5. MIOSAN [Concomitant]
     Indication: PAIN
     Dosage: UNK
     Dates: start: 2010
  6. PANTOPRAZOLE [Concomitant]
     Indication: GASTRITIS
     Dosage: UNK
     Dates: start: 2002
  7. PURAN T4 [Concomitant]
     Indication: HYPOTHYROIDISM
     Dosage: UNK
     Dates: start: 2002
  8. PRESSAT [Concomitant]
     Indication: HYPERTENSION
     Dosage: UNK
     Dates: start: 2008
  9. VITERGAN ZINCO [Concomitant]
     Indication: VITAMIN SUPPLEMENTATION
     Dosage: UNK
     Dates: start: 2011
  10. PERIDAL [Concomitant]
     Indication: DYSPEPSIA
     Dosage: UNK
     Dates: start: 2007
  11. GLUCOREUMIN [Concomitant]
     Indication: OSTEOARTHRITIS
     Dosage: UNK
     Dates: start: 2011

REACTIONS (1)
  - Glaucoma [Unknown]
